FAERS Safety Report 6792509-0 (Version None)
Quarter: 2010Q2

REPORT INFORMATION
  Report Type: 
  Country: None (occurrence: None)
  Receive Date: 20100624
  Receipt Date: 20080822
  Transmission Date: 20101027
  Serious: No
  Sender: FDA-Public Use
  Company Number: US-PFIZER INC-2008070260

PATIENT
  Sex: Female
  Weight: 104.54 kg

DRUGS (4)
  1. DEPO-PROVERA SUSPENSION/INJ [Suspect]
     Indication: CONTRACEPTION
     Route: 030
     Dates: start: 20070801
  2. METFORMIN HCL [Concomitant]
  3. LISINOPRIL [Concomitant]
  4. METOPROLOL [Concomitant]

REACTIONS (1)
  - MENSTRUAL DISCOMFORT [None]
